FAERS Safety Report 14601691 (Version 2)
Quarter: 2018Q1

REPORT INFORMATION
  Report Type: Report from Study
  Country: US (occurrence: US)
  Receive Date: 20180306
  Receipt Date: 20180326
  Transmission Date: 20180509
  Serious: No
  Sender: FDA-Public Use
  Company Number: US-AMGEN-USASL2018029625

PATIENT
  Sex: Female

DRUGS (1)
  1. ENBREL [Suspect]
     Active Substance: ETANERCEPT
     Indication: RHEUMATOID ARTHRITIS
     Dosage: 50 MG, QWK
     Route: 065

REACTIONS (7)
  - Joint swelling [Unknown]
  - Eye swelling [Unknown]
  - Injection site reaction [Unknown]
  - Eye pruritus [Unknown]
  - Swelling face [Unknown]
  - Movement disorder [Unknown]
  - Injection site swelling [Unknown]
